FAERS Safety Report 8492368 (Version 2)
Quarter: 2012Q4

REPORT INFORMATION
  Report Type: 
  Country: US (occurrence: US)
  Receive Date: 20120403
  Receipt Date: 20120830
  Transmission Date: 20130627
  Serious: Yes (Hospitalization)
  Sender: FDA-Public Use
  Company Number: US-BAYER-2012-029756

PATIENT
  Age: 22 Year
  Sex: Female
  Weight: 77.1 kg

DRUGS (8)
  1. YAZ [Suspect]
     Indication: ACNE
     Dosage: UNK
     Dates: start: 200710, end: 200806
  2. MOTRIN [Concomitant]
     Dosage: UNK
     Route: 048
     Dates: start: 2007
  3. LORTAB [Concomitant]
  4. IBUPROFEN [Concomitant]
  5. REGLAN [Concomitant]
  6. DILAUDID [Concomitant]
  7. DROSPIRENONE W/ETHINYLESTRADIOL [Concomitant]
  8. NEXIUM [Concomitant]

REACTIONS (8)
  - Cholelithiasis [None]
  - Cholecystitis acute [None]
  - Pain [None]
  - Injury [None]
  - General physical health deterioration [None]
  - Anxiety [None]
  - Emotional distress [None]
  - Anhedonia [None]
